FAERS Safety Report 8954950 (Version 1)
Quarter: 2012Q4

REPORT INFORMATION
  Report Type: Spontaneous
  Country: US (occurrence: None)
  Receive Date: 20121205
  Receipt Date: 20121205
  Transmission Date: 20130627
  Serious: Yes (Other)
  Sender: FDA-Public Use
  Company Number: None

PATIENT
  Age: 12 Year
  Sex: Male

DRUGS (1)
  1. XOLAIR [Suspect]
     Indication: EXTRINSIC ASTHMA
     Route: 058
     Dates: start: 20121129, end: 20121129

REACTIONS (2)
  - Dysphonia [None]
  - Dyspnoea [None]
